APPROVED DRUG PRODUCT: METHOCARBAMOL
Active Ingredient: METHOCARBAMOL
Strength: 500MG
Dosage Form/Route: TABLET;ORAL
Application: A040489 | Product #001 | TE Code: AA
Applicant: OXFORD PHARMACEUTICALS LLC
Approved: Jan 29, 2003 | RLD: No | RS: No | Type: RX